FAERS Safety Report 9263672 (Version 1)
Quarter: 2013Q2

REPORT INFORMATION
  Report Type: Spontaneous
  Country: AT (occurrence: AT)
  Receive Date: 20130430
  Receipt Date: 20130430
  Transmission Date: 20140414
  Serious: No
  Sender: FDA-Public Use
  Company Number: AT-B.I. PHARMACEUTICALS,INC./RIDGEFIELD-2013-AP-00318AP

PATIENT
  Age: 74 Year
  Sex: Male

DRUGS (1)
  1. TRAJENTA [Suspect]

REACTIONS (1)
  - Angioedema [Recovered/Resolved]
